FAERS Safety Report 6470998-9 (Version None)
Quarter: 2009Q4

REPORT INFORMATION
  Report Type: 
  Country: None (occurrence: None)
  Receive Date: 20091203
  Receipt Date: 20080124
  Transmission Date: 20100525
  Serious: Yes (Death, Hospitalization)
  Sender: FDA-Public Use
  Company Number: GB-ELI_LILLY_AND_COMPANY-GB200801005365

PATIENT
  Age: 72 Year
  Sex: Male

DRUGS (4)
  1. ALIMTA [Suspect]
     Indication: LUNG CARCINOMA CELL TYPE UNSPECIFIED STAGE III
     Dosage: 500 MG/M2, UNKNOWN
     Route: 042
     Dates: start: 20071001, end: 20070101
  2. ALIMTA [Suspect]
     Dosage: 500 MG/M2, UNKNOWN
     Route: 042
     Dates: start: 20071101
  3. VITAMIN B-12 [Concomitant]
     Indication: PROPHYLAXIS
  4. FOLIC ACID [Concomitant]
     Indication: PROPHYLAXIS

REACTIONS (3)
  - CYANOSIS [None]
  - DEATH [None]
  - FIBROSIS [None]
